FAERS Safety Report 7394016-3 (Version None)
Quarter: 2011Q2

REPORT INFORMATION
  Report Type: 
  Country: None (occurrence: None)
  Receive Date: 20110405
  Receipt Date: 20101001
  Transmission Date: 20111010
  Serious: Yes (Hospitalization)
  Sender: FDA-Public Use
  Company Number: US-AMGEN-QUU442552

PATIENT
  Sex: Female

DRUGS (3)
  1. NEULASTA [Suspect]
     Indication: CHEMOTHERAPY
     Dosage: UNK UNK, UNK
     Route: 065
  2. CISPLATIN [Concomitant]
  3. GEMCITABINE [Concomitant]
     Dosage: UNK UNK, UNK

REACTIONS (2)
  - PYREXIA [None]
  - ARTHRALGIA [None]
